FAERS Safety Report 4548452-0 (Version None)
Quarter: 2005Q1

REPORT INFORMATION
  Report Type: 
  Country: None (occurrence: None)
  Receive Date: 20050106
  Receipt Date: 20050104
  Transmission Date: 20050727
  Serious: Yes (Hospitalization, Other)
  Sender: FDA-Public Use
  Company Number: USA041286634

PATIENT
  Age: 43 Year
  Sex: Male
  Weight: 98 kg

DRUGS (1)
  1. CIALIS [Suspect]
     Indication: ERECTILE DYSFUNCTION
     Dosage: 10 MG
     Dates: start: 20041203, end: 20041212

REACTIONS (6)
  - ARTHRALGIA [None]
  - BACK PAIN [None]
  - BLOOD PRESSURE DECREASED [None]
  - BRADYCARDIA [None]
  - HEADACHE [None]
  - SICK SINUS SYNDROME [None]
